FAERS Safety Report 9244476 (Version 2)
Quarter: 2013Q3

REPORT INFORMATION
  Report Type: Spontaneous
  Country: JP (occurrence: JP)
  Receive Date: 20130422
  Receipt Date: 20130806
  Transmission Date: 20140515
  Serious: Yes (Other)
  Sender: FDA-Public Use
  Company Number: JP-BAYER-2013-047755

PATIENT
  Age: 81 Year
  Sex: Male

DRUGS (8)
  1. NEXAVAR [Suspect]
     Indication: HEPATOCELLULAR CARCINOMA
     Dosage: 200 MG, QD
     Route: 048
     Dates: start: 20111123, end: 20120718
  2. NEXAVAR [Suspect]
     Indication: HEPATOCELLULAR CARCINOMA
     Dosage: 400 MG, QD
     Route: 048
     Dates: start: 20120719
  3. AMINOLEBAN EN [Concomitant]
     Indication: HEPATITIS
     Dosage: 50 G, BID
     Route: 048
  4. URSO [Concomitant]
     Indication: HEPATITIS
     Dosage: 2 DF, TID
     Route: 048
  5. LIVACT [Concomitant]
     Indication: HEPATITIS
     Dosage: 1 DF, TID
     Route: 048
  6. NORVASC [Concomitant]
     Indication: HYPERTENSION
     Dosage: 5 MG, QD
     Route: 048
  7. BLOPRESS [Concomitant]
     Indication: HYPERTENSION
     Dosage: 4 MG, QD
     Route: 048
  8. PORTOLAC [Concomitant]
     Indication: HYPERAMMONAEMIA
     Dosage: 6 G, BID
     Route: 048
     Dates: start: 20111130

REACTIONS (4)
  - Hepatic encephalopathy [Recovered/Resolved]
  - Diarrhoea [Recovered/Resolved]
  - Palmar-plantar erythrodysaesthesia syndrome [Recovered/Resolved]
  - Decreased appetite [None]
